FAERS Safety Report 17687612 (Version 4)
Quarter: 2024Q4

REPORT INFORMATION
  Report Type: Spontaneous
  Country: IT (occurrence: IT)
  Receive Date: 20200421
  Receipt Date: 20241105
  Transmission Date: 20250115
  Serious: Yes (Other)
  Sender: ROCHE
  Company Number: IT-ROCHE-2584843

PATIENT
  Age: 49 Year
  Sex: Male
  Weight: 81.5 kg

DRUGS (11)
  1. RIBAVIRIN [Suspect]
     Active Substance: RIBAVIRIN
     Indication: Hepatitis C
     Dosage: FOR 6 MONTHS
     Route: 065
     Dates: start: 2012
  2. RIBAVIRIN [Suspect]
     Active Substance: RIBAVIRIN
     Indication: Viral infection
     Route: 065
     Dates: start: 201504
  3. MYCOPHENOLATE MOFETIL [Suspect]
     Active Substance: MYCOPHENOLATE MOFETIL
     Indication: Prophylaxis against transplant rejection
     Route: 065
  4. SIMEPREVIR [Suspect]
     Active Substance: SIMEPREVIR
     Indication: Viral infection
     Route: 065
  5. CYCLOSPORINE [Suspect]
     Active Substance: CYCLOSPORINE
     Indication: Prophylaxis against transplant rejection
     Route: 065
  6. SOVALDI [Suspect]
     Active Substance: SOFOSBUVIR
     Indication: Viral infection
     Route: 065
  7. ATENOLOL [Concomitant]
     Active Substance: ATENOLOL
  8. URSODIOL [Concomitant]
     Active Substance: URSODIOL
  9. PANTOPRAZOLE [Concomitant]
     Active Substance: PANTOPRAZOLE
  10. HYDROCHLOROTHIAZIDE\RAMIPRIL [Concomitant]
     Active Substance: HYDROCHLOROTHIAZIDE\RAMIPRIL
     Dosage: 2.5/12.5 MG QD
  11. PEGYLATED INTERFERON ALPHA NOS [Concomitant]
     Active Substance: PEGINTERFERON ALFA-2A OR PEGINTERFERON ALFA-2B
     Indication: Hepatitis C
     Dates: start: 2012

REACTIONS (4)
  - Hepatocellular carcinoma [Recovered/Resolved]
  - Chronic kidney disease [Unknown]
  - Hepatitis C [Unknown]
  - Treatment failure [Unknown]

NARRATIVE: CASE EVENT DATE: 20120101
